FAERS Safety Report 5936842-0 (Version None)
Quarter: 2008Q4

REPORT INFORMATION
  Report Type: 
  Country: None (occurrence: None)
  Receive Date: 20081029
  Receipt Date: 20081022
  Transmission Date: 20090506
  Serious: Yes (Hospitalization)
  Sender: FDA-Public Use
  Company Number: JPI-P-005139

PATIENT
  Age: 28 Year
  Sex: Female
  Weight: 71.7 kg

DRUGS (2)
  1. XYREM [Suspect]
     Indication: NARCOLEPSY
     Dosage: ORAL
     Route: 048
  2. PRENATAL VITAMINS (PRENATAL VITAMINS /01549301/) [Concomitant]

REACTIONS (5)
  - ARRHYTHMIA [None]
  - DIZZINESS [None]
  - DRUG EXPOSURE DURING PREGNANCY [None]
  - PALPITATIONS [None]
  - TACHYCARDIA [None]
